FAERS Safety Report 12037852 (Version 2)
Quarter: 2016Q1

REPORT INFORMATION
  Report Type: Spontaneous
  Country: US (occurrence: US)
  Receive Date: 20160208
  Receipt Date: 20160301
  Transmission Date: 20160526
  Serious: No
  Sender: FDA-Public Use
  Company Number: US-VERTEX PHARMACEUTICALS-2016-000629

PATIENT
  Age: 39 Year
  Sex: Female

DRUGS (1)
  1. ORKAMBI [Suspect]
     Active Substance: IVACAFTOR\LUMACAFTOR
     Indication: CYSTIC FIBROSIS
     Dosage: 2 DF (400MG/250MG), BID
     Route: 048
     Dates: start: 20151109, end: 201512

REACTIONS (1)
  - Dyspnoea [Unknown]

NARRATIVE: CASE EVENT DATE: 201511
